FAERS Safety Report 17828680 (Version 1)
Quarter: 2020Q2

REPORT INFORMATION
  Report Type: Spontaneous
  Country: FR (occurrence: FR)
  Receive Date: 20200527
  Receipt Date: 20200527
  Transmission Date: 20200714
  Serious: Yes (Death, Other)
  Sender: FDA-Public Use
  Company Number: FR-CELGENEUS-FRA-20200507957

PATIENT
  Age: 73 Year
  Sex: Female
  Weight: 53 kg

DRUGS (17)
  1. LENALIDOMIDE [Suspect]
     Active Substance: LENALIDOMIDE
     Indication: PLASMA CELL MYELOMA
     Dosage: 5 MILLIGRAM
     Route: 048
     Dates: start: 20160125, end: 20200428
  2. NOCTAMIDE [Concomitant]
     Active Substance: LORMETAZEPAM
     Indication: MIXED ANXIETY AND DEPRESSIVE DISORDER
     Dosage: 2 MILLIGRAM
     Route: 048
     Dates: start: 20151001
  3. VENLAFAXINE [Concomitant]
     Active Substance: VENLAFAXINE HYDROCHLORIDE
     Indication: MIXED ANXIETY AND DEPRESSIVE DISORDER
     Dosage: 75 MILLIGRAM
     Route: 048
     Dates: start: 20151001
  4. LOVENOX [Concomitant]
     Active Substance: ENOXAPARIN SODIUM
     Indication: THROMBOSIS PROPHYLAXIS
     Dosage: .4 MILLILITER
     Route: 058
     Dates: start: 20160125
  5. POTASSIUM CHLORIDE. [Concomitant]
     Active Substance: POTASSIUM CHLORIDE
     Indication: HYPOKALAEMIA
     Route: 048
     Dates: start: 20170123
  6. PARACETAMOL [Concomitant]
     Active Substance: ACETAMINOPHEN
     Indication: OSTEONECROSIS OF JAW
     Route: 048
     Dates: start: 201712
  7. UVEDOSE [Concomitant]
     Active Substance: CHOLECALCIFEROL
     Indication: PROPHYLAXIS
     Dosage: 2 MILLILITER
     Route: 048
  8. CLASTEON [Concomitant]
     Indication: OSTEONECROSIS OF JAW
     Route: 048
     Dates: start: 20190123
  9. DEXAMETHASONE. [Suspect]
     Active Substance: DEXAMETHASONE
     Indication: PLASMA CELL MYELOMA
     Dosage: 10 MILLIGRAM
     Route: 048
     Dates: start: 20160125, end: 20200427
  10. ALPRAZOLAM. [Concomitant]
     Active Substance: ALPRAZOLAM
     Indication: MIXED ANXIETY AND DEPRESSIVE DISORDER
     Dosage: .75 MILLIGRAM
     Route: 048
     Dates: start: 20160109
  11. ZOMETA [Concomitant]
     Active Substance: ZOLEDRONIC ACID
     Indication: BONE PAIN
     Dosage: 4 MILLIGRAM
     Route: 041
     Dates: start: 20151119
  12. OROCAL D3 [Concomitant]
     Active Substance: CALCIUM CARBONATE\CHOLECALCIFEROL
     Indication: HYPOCALCAEMIA
     Dosage: 1000 MILLIGRAM
     Route: 048
     Dates: start: 20160420
  13. PENTOXIFYLINE [Concomitant]
     Active Substance: PENTOXIFYLLINE
     Indication: OSTEONECROSIS OF JAW
     Dosage: 800 MILLIGRAM
     Route: 048
     Dates: start: 20190123
  14. OMEPRAZOLE. [Concomitant]
     Active Substance: OMEPRAZOLE
     Indication: GASTROOESOPHAGEAL REFLUX PROPHYLAXIS
     Dosage: 20 MILLIGRAM
     Route: 048
     Dates: start: 20160125
  15. MORPHINE SULFATE. [Concomitant]
     Active Substance: MORPHINE SULFATE
     Indication: OSTEONECROSIS OF JAW
     Dosage: 40 MILLIGRAM
     Route: 048
     Dates: start: 201712
  16. AMLODAC D [Concomitant]
     Indication: HYPERTENSION
     Dosage: 1.5 MILLIGRAM
     Route: 048
  17. TOCOPHEROL [Concomitant]
     Active Substance: TOCOPHEROL
     Indication: OSTEONECROSIS OF JAW
     Dosage: 1000 MILLIGRAM
     Route: 048
     Dates: start: 20190123

REACTIONS (1)
  - Death [Fatal]

NARRATIVE: CASE EVENT DATE: 20200429
